FAERS Safety Report 5908615-6 (Version None)
Quarter: 2008Q4

REPORT INFORMATION
  Report Type: 
  Country: None (occurrence: None)
  Receive Date: 20081006
  Receipt Date: 20080929
  Transmission Date: 20090506
  Serious: Yes (Life-Threatening, Hospitalization)
  Sender: FDA-Public Use
  Company Number: BR-ABBOTT-08P-020-0457696-00

PATIENT
  Sex: Female
  Weight: 52.7 kg

DRUGS (9)
  1. RITONAVIR SOFT GELATIN CAPSULES [Suspect]
     Indication: HIV INFECTION
     Route: 048
     Dates: start: 20050329, end: 20080527
  2. RITONAVIR SOFT GELATIN CAPSULES [Suspect]
     Dates: start: 20080624
  3. TMC114 [Concomitant]
     Indication: HIV INFECTION
     Route: 048
     Dates: start: 20050329, end: 20080527
  4. ZIDOVUDINE [Concomitant]
     Indication: HIV INFECTION
     Dates: start: 20050412, end: 20080527
  5. ZIDOVUDINE [Concomitant]
     Dates: start: 20080624
  6. DIDANOSINE [Concomitant]
     Indication: HIV INFECTION
     Dates: start: 20050816, end: 20080527
  7. ENFUVIRTIDE [Concomitant]
     Indication: HIV INFECTION
     Dates: start: 20061107, end: 20080527
  8. ENFUVIRTIDE [Concomitant]
     Dates: start: 20080624
  9. COMMERCIAL DARUNAVIR [Concomitant]
     Indication: HIV INFECTION
     Route: 048
     Dates: start: 20080724

REACTIONS (2)
  - PORTAL HYPERTENSION [None]
  - UPPER GASTROINTESTINAL HAEMORRHAGE [None]
